FAERS Safety Report 8584926-3 (Version None)
Quarter: 2012Q3

REPORT INFORMATION
  Report Type: 
  Country: None (occurrence: None)
  Receive Date: 20120810
  Receipt Date: 20120730
  Transmission Date: 20120928
  Serious: No
  Sender: FDA-Public Use
  Company Number: US-BAYER-2012-076843

PATIENT
  Sex: Female

DRUGS (5)
  1. ALEVE (CAPLET) [Suspect]
     Indication: HEADACHE
     Route: 048
  2. IBUPROFEN [Concomitant]
  3. ALEVE (CAPLET) [Suspect]
     Indication: ARTHRALGIA
  4. TYLENOL (CAPLET) [Concomitant]
  5. ADVIL [Concomitant]

REACTIONS (2)
  - ARTHRALGIA [None]
  - HEADACHE [None]
